FAERS Safety Report 6693288-8 (Version None)
Quarter: 2010Q2

REPORT INFORMATION
  Report Type: 
  Country: None (occurrence: None)
  Receive Date: 20100422
  Receipt Date: 20100413
  Transmission Date: 20101027
  Serious: Yes (Hospitalization)
  Sender: FDA-Public Use
  Company Number: DE-AMGEN-US374073

PATIENT
  Age: 63 Year
  Sex: Female

DRUGS (2)
  1. ENBREL [Suspect]
     Indication: RHEUMATOID ARTHRITIS
     Route: 058
     Dates: start: 20081216
  2. ENBREL [Suspect]
     Indication: POLYARTHRITIS

REACTIONS (6)
  - CONDITION AGGRAVATED [None]
  - JOINT EFFUSION [None]
  - MENISCUS LESION [None]
  - PATELLA FRACTURE [None]
  - RHEUMATOID ARTHRITIS [None]
  - SYNOVECTOMY [None]
